FAERS Safety Report 5127956-6 (Version None)
Quarter: 2006Q4

REPORT INFORMATION
  Report Type: 
  Country: None (occurrence: None)
  Receive Date: 20061011
  Receipt Date: 20060929
  Transmission Date: 20070319
  Serious: Yes (Hospitalization, Other)
  Sender: FDA-Public Use
  Company Number: 2006-07-1487

PATIENT
  Age: 60 Year
  Sex: Male
  Weight: 56 kg

DRUGS (8)
  1. PEG-INTRON [Suspect]
     Indication: HEPATITIS C
     Dosage: 90 MCG/WK; SC
     Route: 058
     Dates: start: 20060526, end: 20060729
  2. RIBAVIRIN [Suspect]
     Indication: HEPATITIS C
     Dosage: SEE IMAGE, PO
     Route: 048
     Dates: start: 20060526, end: 20060601
  3. RIBAVIRIN [Suspect]
     Indication: HEPATITIS C
     Dosage: SEE IMAGE, PO
     Route: 048
     Dates: start: 20060601, end: 20060803
  4. TIMOLOL MALEATE [Concomitant]
  5. ALDACTONE [Concomitant]
  6. BEVON [Concomitant]
  7. LACTULOSE [Concomitant]
  8. ACETAMINOPHEN [Concomitant]

REACTIONS (5)
  - ANAEMIA [None]
  - HAEMOPTYSIS [None]
  - PARATRACHEAL LYMPHADENOPATHY [None]
  - PNEUMONIA [None]
  - PRODUCTIVE COUGH [None]
